FAERS Safety Report 5280171-8 (Version None)
Quarter: 2007Q1

REPORT INFORMATION
  Report Type: 
  Country: None (occurrence: None)
  Receive Date: 20070326
  Receipt Date: 20070326
  Transmission Date: 20070707
  Serious: Yes (Other)
  Sender: FDA-Public Use
  Company Number: None

PATIENT
  Age: 54 Year
  Sex: Female
  Weight: 72.5755 kg

DRUGS (2)
  1. SERTRALINE [Suspect]
     Indication: ANXIETY
     Dosage: 100 MG 1 PER DAY PO
     Route: 048
     Dates: start: 20070109, end: 20070323
  2. SERTRALINE [Suspect]
     Indication: DEPRESSION
     Dosage: 100 MG 1 PER DAY PO
     Route: 048
     Dates: start: 20070109, end: 20070323

REACTIONS (2)
  - DRUG INEFFECTIVE [None]
  - THERAPEUTIC RESPONSE UNEXPECTED WITH DRUG SUBSTITUTION [None]
